FAERS Safety Report 23539856 (Version 3)
Quarter: 2024Q1

REPORT INFORMATION
  Report Type: Report from Study
  Country: CN (occurrence: CN)
  Receive Date: 20240219
  Receipt Date: 20240223
  Transmission Date: 20240410
  Serious: Yes (Other)
  Sender: FDA-Public Use
  Company Number: CN-PFIZER INC-PV202400019695

PATIENT
  Sex: Female

DRUGS (3)
  1. IRINOTECAN HYDROCHLORIDE [Suspect]
     Active Substance: IRINOTECAN HYDROCHLORIDE
     Indication: Epithelioid sarcoma
     Dosage: 50 MG/M2/D FOR 5 DAYS EVERY 3 WEEKS
     Route: 042
  2. VINCRISTINE [Suspect]
     Active Substance: VINCRISTINE
     Indication: Epithelioid sarcoma
     Dosage: 1.4 MG/M2 (MAXIMUM 2 MG) ON DAYS 1 AND 8
  3. CATEQUENTINIB [Suspect]
     Active Substance: CATEQUENTINIB
     Indication: Epithelioid sarcoma
     Dosage: ONCE DAILY ON DAYS 1-14 WITHIN A 21-DAY CYCLE
     Route: 048

REACTIONS (2)
  - Soft tissue necrosis [Recovered/Resolved]
  - Tumour rupture [Recovered/Resolved]
